FAERS Safety Report 9634874 (Version 1)
Quarter: 2013Q4

REPORT INFORMATION
  Report Type: Spontaneous
  Country: CA (occurrence: US)
  Receive Date: 20131021
  Receipt Date: 20131021
  Transmission Date: 20140711
  Serious: No
  Sender: FDA-Public Use
  Company Number: CA-PURDUE-USA-2013-0101960

PATIENT
  Sex: Male
  Weight: 79.37 kg

DRUGS (1)
  1. BUTRANS [Suspect]
     Indication: PAIN
     Dosage: 10 MCG/HR, UNK
     Route: 062
     Dates: start: 20130402

REACTIONS (2)
  - Application site urticaria [Unknown]
  - Application site papules [Unknown]
